FAERS Safety Report 24850713 (Version 2)
Quarter: 2025Q1

REPORT INFORMATION
  Report Type: Spontaneous
  Country: CA (occurrence: CA)
  Receive Date: 20250116
  Receipt Date: 20250313
  Transmission Date: 20250409
  Serious: Yes (Other)
  Sender: PFIZER
  Company Number: CA-PFIZER INC-202400332943

PATIENT
  Age: 79 Year
  Sex: Female

DRUGS (8)
  1. RUXIENCE [Suspect]
     Active Substance: RITUXIMAB-PVVR
     Indication: Granulomatosis with polyangiitis
     Route: 042
     Dates: start: 20230605
  2. RUXIENCE [Suspect]
     Active Substance: RITUXIMAB-PVVR
     Route: 042
     Dates: start: 20240610
  3. RUXIENCE [Suspect]
     Active Substance: RITUXIMAB-PVVR
     Route: 042
     Dates: start: 20241211
  4. FUROSEMIDE [Concomitant]
     Active Substance: FUROSEMIDE
  5. SULFADIAZINE\TRIMETHOPRIM [Concomitant]
     Active Substance: SULFADIAZINE\TRIMETHOPRIM
  6. ATORVASTATIN [Concomitant]
     Active Substance: ATORVASTATIN
  7. PREDNISONE [Concomitant]
     Active Substance: PREDNISONE
  8. RAMIPRIL [Concomitant]
     Active Substance: RAMIPRIL

REACTIONS (10)
  - Blindness transient [Unknown]
  - Hypertension [Unknown]
  - Infusion related reaction [Unknown]
  - Rash erythematous [Unknown]
  - Rash papular [Unknown]
  - Skin discolouration [Unknown]
  - Exfoliative rash [Unknown]
  - Skin burning sensation [Recovering/Resolving]
  - Pain of skin [Recovering/Resolving]
  - Pruritus [Recovering/Resolving]

NARRATIVE: CASE EVENT DATE: 20240101
